FAERS Safety Report 24415074 (Version 1)
Quarter: 2024Q4

REPORT INFORMATION
  Report Type: Report from Study
  Country: US (occurrence: US)
  Receive Date: 20241009
  Receipt Date: 20241009
  Transmission Date: 20250114
  Serious: Yes (Other)
  Sender: ROCHE
  Company Number: US-ROCHE-3407679

PATIENT
  Age: 77 Year
  Sex: Female

DRUGS (6)
  1. VABYSMO [Suspect]
     Active Substance: FARICIMAB-SVOA
     Indication: Age-related macular degeneration
     Route: 050
  2. VABYSMO [Suspect]
     Active Substance: FARICIMAB-SVOA
     Indication: Diabetic retinal oedema
  3. BEVACIZUMAB [Suspect]
     Active Substance: BEVACIZUMAB
     Indication: Neovascular age-related macular degeneration
     Route: 065
  4. ESTRADIOL [Concomitant]
     Active Substance: ESTRADIOL
  5. LEVOTHYROXINE [Concomitant]
     Active Substance: LEVOTHYROXINE
  6. PRAVASTATIN [Concomitant]
     Active Substance: PRAVASTATIN

REACTIONS (8)
  - Haemorrhagic vasculitis [Unknown]
  - Visual impairment [Unknown]
  - Eye pain [Unknown]
  - Anterior chamber inflammation [Unknown]
  - Cataract nuclear [Unknown]
  - Photopsia [Unknown]
  - Vitreous floaters [Unknown]
  - Off label use [Unknown]
